FAERS Safety Report 6241415-9 (Version None)
Quarter: 2009Q2

REPORT INFORMATION
  Report Type: 
  Country: None (occurrence: None)
  Receive Date: 20090623
  Receipt Date: 20090612
  Transmission Date: 20091009
  Serious: Yes (Hospitalization)
  Sender: FDA-Public Use
  Company Number: JP-GILEAD-E2B_00000338

PATIENT
  Sex: Female

DRUGS (6)
  1. HEPSERA [Suspect]
     Indication: HEPATITIS B
     Dosage: 10MG PER DAY
     Route: 048
     Dates: start: 20040401
  2. ZEFIX [Suspect]
     Indication: HEPATITIS B
     Dosage: 100MG PER DAY
     Route: 048
     Dates: start: 20050801
  3. ACTONEL [Concomitant]
     Route: 048
  4. NOVORAPID [Concomitant]
     Indication: DIABETES MELLITUS
     Route: 058
     Dates: start: 20080424
  5. SLOW-K [Concomitant]
     Indication: HYPOKALAEMIA
     Dosage: 1800MG PER DAY
     Route: 048
     Dates: start: 20070601
  6. ALDACTONE [Concomitant]
     Indication: HYPOKALAEMIA
     Route: 048

REACTIONS (6)
  - ACIDOSIS [None]
  - BLOOD PHOSPHORUS DECREASED [None]
  - HYPOKALAEMIA [None]
  - PYELONEPHRITIS [None]
  - RENAL IMPAIRMENT [None]
  - RENAL TUBULAR DISORDER [None]
